FAERS Safety Report 4407278-9 (Version None)
Quarter: 2004Q3

REPORT INFORMATION
  Report Type: 
  Country: None (occurrence: None)
  Receive Date: 20040721
  Receipt Date: 20040702
  Transmission Date: 20050211
  Serious: Yes (Other)
  Sender: FDA-Public Use
  Company Number: USA040157051

PATIENT
  Age: 79 Year
  Sex: Female
  Weight: 61 kg

DRUGS (4)
  1. FORTEO [Suspect]
     Indication: OSTEOPOROSIS
     Dosage: 20 UG/DAY
     Dates: start: 20031212
  2. MULTI-VITAMINS [Concomitant]
  3. CALCIUM [Concomitant]
  4. STEROIDS [Concomitant]

REACTIONS (6)
  - ASTHENIA [None]
  - BRAIN NEOPLASM MALIGNANT [None]
  - CONSTIPATION [None]
  - FEELING ABNORMAL [None]
  - INJECTION SITE HAEMORRHAGE [None]
  - NAUSEA [None]
